FAERS Safety Report 18932179 (Version 1)
Quarter: 2021Q1

REPORT INFORMATION
  Report Type: Spontaneous
  Country: US (occurrence: US)
  Receive Date: 20210224
  Receipt Date: 20210224
  Transmission Date: 20210420
  Serious: No
  Sender: FDA-Public Use
  Company Number: US-TEVA-2021-US-1883772

PATIENT

DRUGS (1)
  1. BUPROPION HCL XL ACTAVIS [Suspect]
     Active Substance: BUPROPION HYDROCHLORIDE
     Route: 065
     Dates: start: 2020

REACTIONS (9)
  - Headache [Unknown]
  - Hyperhidrosis [Unknown]
  - Impaired work ability [Unknown]
  - Insomnia [Unknown]
  - Nausea [Unknown]
  - Tremor [Unknown]
  - Head discomfort [Unknown]
  - Feeding disorder [Unknown]
  - Product quality issue [Unknown]
